FAERS Safety Report 4478062-5 (Version None)
Quarter: 2004Q3

REPORT INFORMATION
  Report Type: 
  Country: None (occurrence: None)
  Receive Date: 20040923
  Receipt Date: 20040727
  Transmission Date: 20050211
  Serious: No
  Sender: FDA-Public Use
  Company Number: US_0406103645

PATIENT
  Age: 80 Year
  Sex: Female

DRUGS (4)
  1. EVISTA [Suspect]
  2. FORTEO [Suspect]
     Indication: OSTEOPOROSIS
     Dates: start: 20040711
  3. FOSAMAX [Concomitant]
  4. HORMONE REPLACEMENT [Concomitant]

REACTIONS (8)
  - ARTHRALGIA [None]
  - ERYTHEMA [None]
  - HOT FLUSH [None]
  - INJECTION SITE HAEMORRHAGE [None]
  - NERVOUSNESS [None]
  - PAIN IN EXTREMITY [None]
  - RASH [None]
  - SPINAL FRACTURE [None]
